FAERS Safety Report 21867246 (Version 4)
Quarter: 2024Q4

REPORT INFORMATION
  Report Type: Spontaneous
  Country: US (occurrence: US)
  Receive Date: 20230116
  Receipt Date: 20241014
  Transmission Date: 20250115
  Serious: Yes (Disabling, Other)
  Sender: NOVARTIS
  Company Number: US-002147023-NVSC2023US009376

PATIENT
  Age: 73 Year
  Sex: Male
  Weight: 102.9 kg

DRUGS (1)
  1. PLUVICTO [Suspect]
     Active Substance: LUTETIUM LU-177 VIPIVOTIDE TETRAXETAN
     Indication: Prostate cancer
     Dosage: UNK, (96W)
     Route: 042
     Dates: start: 20220729, end: 20230207

REACTIONS (5)
  - Ill-defined disorder [Not Recovered/Not Resolved]
  - Acute kidney injury [Unknown]
  - Blood creatine increased [Unknown]
  - Haemoglobin decreased [Unknown]
  - Anaemia [Unknown]

NARRATIVE: CASE EVENT DATE: 20230113
